FAERS Safety Report 8029908-5 (Version None)
Quarter: 2011Q4

REPORT INFORMATION
  Report Type: 
  Country: None (occurrence: None)
  Receive Date: 20111130
  Receipt Date: 20110506
  Transmission Date: 20120403
  Serious: Yes (Hospitalization)
  Sender: FDA-Public Use
  Company Number: US201105001751

PATIENT
  Age: 60 Year
  Sex: Female
  Weight: 109.8 kg

DRUGS (6)
  1. ACTOS [Concomitant]
  2. NEXIUM [Concomitant]
  3. MILNACIPRAN HYDROCHLORIDE [Concomitant]
  4. TRAZODONE HCL [Concomitant]
  5. COMPAZINE [Concomitant]
  6. BYETTA [Suspect]
     Indication: DIABETES MELLITUS
     Dosage: 5 UG, BID, SUBCUTANEOUS, 10 UG, BID, SUBCUTANEOUS, 20 UG, BID, SUBCUTANEOUS, 30 UG, BID, SUBCUTANEOU
     Route: 058
     Dates: start: 20090601

REACTIONS (13)
  - NAUSEA [None]
  - HYPOGLYCAEMIA [None]
  - ABDOMINAL PAIN UPPER [None]
  - VOMITING [None]
  - DIZZINESS [None]
  - SOMNOLENCE [None]
  - DECREASED APPETITE [None]
  - OVERDOSE [None]
  - IMPAIRED GASTRIC EMPTYING [None]
  - BLOOD GLUCOSE INCREASED [None]
  - BALANCE DISORDER [None]
  - FATIGUE [None]
  - WEIGHT DECREASED [None]
